FAERS Safety Report 5649062-4 (Version None)
Quarter: 2008Q1

REPORT INFORMATION
  Report Type: 
  Country: None (occurrence: None)
  Receive Date: 20080131
  Receipt Date: 20071126
  Transmission Date: 20080703
  Serious: No
  Sender: FDA-Public Use
  Company Number: US200709005042

PATIENT
  Age: 45 Year
  Sex: Male

DRUGS (11)
  1. BYETTA [Suspect]
     Indication: TYPE 2 DIABETES MELLITUS
     Dosage: 5 UG, 2/D; 10 UG, 2/D, SUBCUTANEOUS
     Route: 058
     Dates: start: 20070530, end: 20070630
  2. BYETTA [Suspect]
     Indication: TYPE 2 DIABETES MELLITUS
     Dosage: 5 UG, 2/D; 10 UG, 2/D, SUBCUTANEOUS
     Route: 058
     Dates: start: 20070630, end: 20070801
  3. EXENATIDE [Concomitant]
  4. ASPIRIN [Concomitant]
  5. METFORMIN HCL [Concomitant]
  6. LISINOPRIL [Concomitant]
  7. METOPROLOL TARTRATE [Concomitant]
  8. LOVASTATIN [Concomitant]
  9. OXYCONTIN 9OXYCODONE HYDROCHLORIDE) [Concomitant]
  10. VALIUM [Concomitant]
  11. NEURONTIN [Concomitant]

REACTIONS (1)
  - COLITIS ULCERATIVE [None]
